FAERS Safety Report 12823202 (Version 1)
Quarter: 2016Q4

REPORT INFORMATION
  Report Type: Spontaneous
  Country: BR (occurrence: BR)
  Receive Date: 20161007
  Receipt Date: 20161007
  Transmission Date: 20170207
  Serious: Yes (Congenital Anomaly, Other)
  Sender: FDA-Public Use
  Company Number: BR-009507513-1610BRA000350

PATIENT
  Sex: Female
  Weight: 3.1 kg

DRUGS (1)
  1. NUVARING [Suspect]
     Active Substance: ETHINYL ESTRADIOL\ETONOGESTREL
     Dosage: UNK
     Route: 064

REACTIONS (2)
  - Foetal cardiac disorder [Recovered/Resolved]
  - Foetal arrhythmia [Recovered/Resolved]

NARRATIVE: CASE EVENT DATE: 20140428
